FAERS Safety Report 6612873-2 (Version None)
Quarter: 2010Q1

REPORT INFORMATION
  Report Type: 
  Country: None (occurrence: None)
  Receive Date: 20100303
  Receipt Date: 20100223
  Transmission Date: 20100710
  Serious: Yes (Hospitalization)
  Sender: FDA-Public Use
  Company Number: JP-MERCK-0911USA02344

PATIENT
  Age: 95 Year
  Sex: Female
  Weight: 50 kg

DRUGS (2)
  1. FOSAMAX [Suspect]
     Route: 048
     Dates: start: 20001201, end: 20051201
  2. PREDONINE [Suspect]
     Route: 048
     Dates: start: 20001201, end: 20051201

REACTIONS (1)
  - OSTEOMYELITIS [None]
